FAERS Safety Report 26078015 (Version 1)
Quarter: 2025Q4

REPORT INFORMATION
  Report Type: Spontaneous
  Country: US (occurrence: US)
  Receive Date: 20251122
  Receipt Date: 20251122
  Transmission Date: 20260118
  Serious: Yes (Other)
  Sender: SANOFI AVENTIS
  Company Number: US-SA-2025SA349916

PATIENT
  Sex: Male
  Weight: 59.87 kg

DRUGS (6)
  1. DUPIXENT [Suspect]
     Active Substance: DUPILUMAB
     Indication: Dermatitis atopic
     Dosage: 300 MG, QOW
     Route: 058
  2. DUPIXENT [Suspect]
     Active Substance: DUPILUMAB
     Indication: Eczema
  3. ELIQUIS [Concomitant]
     Active Substance: APIXABAN
  4. NEXIUM [Concomitant]
     Active Substance: ESOMEPRAZOLE MAGNESIUM
  5. VALSARTAN [Concomitant]
     Active Substance: VALSARTAN
  6. COREG [Concomitant]
     Active Substance: CARVEDILOL

REACTIONS (4)
  - Salmonellosis [Unknown]
  - Atrial fibrillation [Unknown]
  - Hypertension [Unknown]
  - Heart rate increased [Unknown]
